FAERS Safety Report 9612582 (Version 1)
Quarter: 2013Q4

REPORT INFORMATION
  Report Type: Report from Study
  Country: NL (occurrence: NL)
  Receive Date: 20131010
  Receipt Date: 20131010
  Transmission Date: 20140711
  Serious: Yes (Hospitalization)
  Sender: FDA-Public Use
  Company Number: NL-JNJFOC-20131005436

PATIENT
  Age: 67 Year
  Sex: Male

DRUGS (16)
  1. ABIRATERONE ACETATE [Suspect]
     Indication: PROSTATE CANCER
     Route: 048
     Dates: start: 20120531, end: 20120907
  2. FUROSEMIDE [Suspect]
     Indication: PRODUCT USED FOR UNKNOWN INDICATION
     Route: 065
     Dates: start: 201209
  3. FUROSEMIDE [Suspect]
     Indication: PRODUCT USED FOR UNKNOWN INDICATION
     Route: 065
     Dates: end: 201209
  4. FUROSEMIDE [Suspect]
     Indication: PRODUCT USED FOR UNKNOWN INDICATION
     Dosage: ADDITIONAL AS NEEDED
     Route: 065
     Dates: start: 201209
  5. INSPRA [Concomitant]
     Dates: end: 201209
  6. INSPRA [Concomitant]
     Dates: start: 201209
  7. OXAZEPAM [Concomitant]
     Route: 065
  8. METOPROLOL SUCCINATE [Concomitant]
     Route: 065
     Dates: end: 201209
  9. METOPROLOL SUCCINATE [Concomitant]
     Route: 065
  10. ALFACALCIDOL [Concomitant]
     Route: 065
  11. ACENOCOUMAROL [Concomitant]
     Route: 065
  12. PANTOPRAZOLE [Concomitant]
     Route: 065
  13. ENALAPRIL [Concomitant]
     Route: 065
     Dates: end: 201209
  14. AMIODARONE [Concomitant]
     Route: 065
     Dates: end: 201209
  15. MOLAXOLE [Concomitant]
     Route: 065
  16. LUCRIN [Concomitant]
     Indication: PROSTATE CANCER
     Route: 065
     Dates: start: 2009

REACTIONS (1)
  - Hyponatraemia [Recovering/Resolving]
